FAERS Safety Report 15705385 (Version 2)
Quarter: 2019Q1

REPORT INFORMATION
  Report Type: Spontaneous
  Country: US (occurrence: US)
  Receive Date: 20181210
  Receipt Date: 20190107
  Transmission Date: 20190417
  Serious: No
  Sender: FDA-Public Use
  Company Number: US-BAYER-2018-221749

PATIENT
  Sex: Female

DRUGS (8)
  1. ESTRADIOL. [Suspect]
     Active Substance: ESTRADIOL
     Indication: MENOPAUSE
     Dosage: UNK
     Route: 062
  2. HYDROCODONE [Concomitant]
     Active Substance: HYDROCODONE
  3. ALPAZ [ALPRAZOLAM] [Concomitant]
  4. GABAPENTIN. [Concomitant]
     Active Substance: GABAPENTIN
  5. CITALOPRAM [Concomitant]
     Active Substance: CITALOPRAM HYDROBROMIDE
  6. TRAMADOL. [Concomitant]
     Active Substance: TRAMADOL
  7. BACTOPRIM [Concomitant]
  8. LISPRIL [Concomitant]

REACTIONS (3)
  - Product adhesion issue [None]
  - Inappropriate schedule of product administration [None]
  - Off label use [None]

NARRATIVE: CASE EVENT DATE: 2018
